FAERS Safety Report 10733328 (Version 3)
Quarter: 2016Q1

REPORT INFORMATION
  Report Type: Spontaneous
  Country: US (occurrence: US)
  Receive Date: 20150123
  Receipt Date: 20160209
  Transmission Date: 20160525
  Serious: Yes (Hospitalization, Other)
  Sender: FDA-Public Use
  Company Number: US-BAYER-2015-009275

PATIENT
  Age: 19 Year
  Sex: Female
  Weight: 61.22 kg

DRUGS (2)
  1. MIRENA [Suspect]
     Active Substance: LEVONORGESTREL
     Indication: CONTRACEPTION
     Dosage: 20 MCG/24HR, CONT
     Route: 015
     Dates: start: 200702, end: 200910
  2. CELEXA [Concomitant]
     Active Substance: CITALOPRAM HYDROBROMIDE
     Dosage: UNK
     Dates: end: 2015

REACTIONS (9)
  - Abasia [None]
  - Medical device pain [None]
  - Genital haemorrhage [None]
  - Abdominal pain lower [None]
  - Mobility decreased [None]
  - Uterine perforation [None]
  - Injury [None]
  - Infection [None]
  - Device issue [None]

NARRATIVE: CASE EVENT DATE: 2007
